FAERS Safety Report 12510674 (Version 1)
Quarter: 2016Q2

REPORT INFORMATION
  Report Type: Spontaneous
  Country: US (occurrence: US)
  Receive Date: 20160629
  Receipt Date: 20160629
  Transmission Date: 20160815
  Serious: No
  Sender: FDA-Public Use
  Company Number: US-RECKITT BENCKISER HEALTHCARE INT LIMITED-RB-81478-2016

PATIENT
  Sex: Female

DRUGS (2)
  1. BIAXIN [Concomitant]
     Active Substance: CLARITHROMYCIN
     Indication: EAR PAIN
     Dosage: UNK
     Route: 065
  2. MUCINEX [Suspect]
     Active Substance: GUAIFENESIN
     Indication: INFLUENZA
     Dosage: UNK
     Route: 065
     Dates: start: 201601

REACTIONS (1)
  - Dehydration [Not Recovered/Not Resolved]

NARRATIVE: CASE EVENT DATE: 201601
